FAERS Safety Report 6662226-6 (Version None)
Quarter: 2010Q1

REPORT INFORMATION
  Report Type: 
  Country: None (occurrence: None)
  Receive Date: 20100331
  Receipt Date: 20100323
  Transmission Date: 20100710
  Serious: Yes (Hospitalization)
  Sender: FDA-Public Use
  Company Number: GXKR2010IT03494

PATIENT
  Sex: Female

DRUGS (1)
  1. ALPRAZOLAM (NGX) [Suspect]
     Route: 065

REACTIONS (2)
  - SOPOR [None]
  - SPEECH DISORDER [None]
